FAERS Safety Report 18809697 (Version 2)
Quarter: 2021Q1

REPORT INFORMATION
  Report Type: Spontaneous
  Country: US (occurrence: US)
  Receive Date: 20210129
  Receipt Date: 20210315
  Transmission Date: 20210419
  Serious: No
  Sender: FDA-Public Use
  Company Number: US-BIOVITRUM-2021US1011

PATIENT
  Sex: Male
  Weight: 9 kg

DRUGS (3)
  1. SYNAGIS [Suspect]
     Active Substance: PALIVIZUMAB
     Indication: ANAEMIA NEONATAL
  2. SYNAGIS [Suspect]
     Active Substance: PALIVIZUMAB
     Indication: PREMATURE BABY
     Dosage: 100MG/1ML VL LIQUID
     Route: 030
  3. POLY?VI?SOL [Concomitant]
     Active Substance: VITAMINS
     Dosage: 250?50/ML DROPS

REACTIONS (2)
  - Pyrexia [Unknown]
  - Product dose omission issue [Unknown]
